FAERS Safety Report 7273513-5 (Version None)
Quarter: 2011Q1

REPORT INFORMATION
  Report Type: 
  Country: None (occurrence: None)
  Receive Date: 20110203
  Receipt Date: 20110128
  Transmission Date: 20110831
  Serious: Yes (Other)
  Sender: FDA-Public Use
  Company Number: US-PFIZER INC-US-WYE-H14106010

PATIENT
  Sex: Female

DRUGS (3)
  1. PROVERA [Suspect]
     Dosage: UNK
     Route: 048
  2. PREMPRO [Suspect]
     Dosage: UNK
     Route: 048
  3. PREMARIN [Suspect]
     Dosage: UNK
     Route: 048

REACTIONS (1)
  - BREAST CANCER FEMALE [None]
